FAERS Safety Report 5715416-0 (Version None)
Quarter: 2008Q2

REPORT INFORMATION
  Report Type: 
  Country: None (occurrence: None)
  Receive Date: 20080423
  Receipt Date: 20080417
  Transmission Date: 20081010
  Serious: Yes (Death, Other)
  Sender: FDA-Public Use
  Company Number: US-PFIZER INC-2008033968

PATIENT
  Sex: Female

DRUGS (1)
  1. CELEBREX [Suspect]
     Dates: start: 20021112, end: 20030819

REACTIONS (2)
  - CEREBROVASCULAR ACCIDENT [None]
  - DEATH [None]
